FAERS Safety Report 4884381-0 (Version None)
Quarter: 2006Q1

REPORT INFORMATION
  Report Type: 
  Country: None (occurrence: None)
  Receive Date: 20060117
  Receipt Date: 20060117
  Transmission Date: 20060701
  Serious: Yes (Hospitalization)
  Sender: FDA-Public Use
  Company Number: None

PATIENT
  Age: 81 Year
  Sex: Female

DRUGS (10)
  1. TEQUIN [Suspect]
     Indication: CHRONIC OBSTRUCTIVE PULMONARY DISEASE
     Dosage: 400 MG QD PO X 5 DAYS
     Route: 048
     Dates: start: 20040212, end: 20040214
  2. TEQUIN [Suspect]
     Indication: RESPIRATORY TRACT INFECTION
     Dosage: 400 MG QD PO X 5 DAYS
     Route: 048
     Dates: start: 20040212, end: 20040214
  3. ADVAIR DISKUS 100/50 [Concomitant]
  4. PREMARIN [Concomitant]
  5. TIAZAC [Concomitant]
  6. PROVENTIL [Concomitant]
  7. POTASSIUM CHLORIDE [Concomitant]
  8. GLYNASE [Concomitant]
  9. IPRATROPIUM BROMIDE [Concomitant]
  10. PREDNISONE [Concomitant]

REACTIONS (1)
  - HYPOGLYCAEMIA [None]
